FAERS Safety Report 13006623 (Version 1)
Quarter: 2016Q4

REPORT INFORMATION
  Report Type: Spontaneous
  Country: US (occurrence: US)
  Receive Date: 20161207
  Receipt Date: 20161207
  Transmission Date: 20170207
  Serious: Yes (Life-Threatening, Hospitalization, Other)
  Sender: FDA-Public Use
  Company Number: None

PATIENT
  Age: 19 Year
  Sex: Female
  Weight: 65.25 kg

DRUGS (3)
  1. CYPROHEPTADINE. [Concomitant]
     Active Substance: CYPROHEPTADINE
  2. SETLAKIN [Suspect]
     Active Substance: ETHINYL ESTRADIOL\LEVONORGESTREL
     Indication: CONTRACEPTION
     Dosage: ?          QUANTITY:84 TABLET(S);?
     Route: 048
     Dates: start: 20160810, end: 20161126
  3. SETLAKIN [Suspect]
     Active Substance: ETHINYL ESTRADIOL\LEVONORGESTREL
     Indication: PAIN
     Dosage: ?          QUANTITY:84 TABLET(S);?
     Route: 048
     Dates: start: 20160810, end: 20161126

REACTIONS (10)
  - Migraine [None]
  - Facial paralysis [None]
  - Constipation [None]
  - Heart rate irregular [None]
  - Superior sagittal sinus thrombosis [None]
  - Headache [None]
  - Vomiting [None]
  - Paraesthesia [None]
  - Neck pain [None]
  - Heart rate decreased [None]

NARRATIVE: CASE EVENT DATE: 20161129
